FAERS Safety Report 11247026 (Version 1)
Quarter: 2015Q3

REPORT INFORMATION
  Report Type: Spontaneous
  Country: US (occurrence: None)
  Receive Date: 20150706
  Receipt Date: 20150706
  Transmission Date: 20151125
  Serious: No
  Sender: FDA-Public Use
  Company Number: None

PATIENT
  Age: 23 Year
  Sex: Female
  Weight: 52.16 kg

DRUGS (2)
  1. TRANSDERM SCOP [Suspect]
     Active Substance: SCOPOLAMINE
     Dosage: 1 PATCH EVERY 72 HOURS
     Route: 061
     Dates: start: 20150617, end: 20150627
  2. RECLIPSEN [Concomitant]
     Active Substance: DESOGESTREL\ETHINYL ESTRADIOL

REACTIONS (7)
  - Nausea [None]
  - Gait disturbance [None]
  - Vomiting [None]
  - Drug withdrawal syndrome [None]
  - Hypophagia [None]
  - Food aversion [None]
  - Headache [None]

NARRATIVE: CASE EVENT DATE: 20150705
